FAERS Safety Report 14542519 (Version 1)
Quarter: 2018Q1

REPORT INFORMATION
  Report Type: Spontaneous
  Country: US (occurrence: US)
  Receive Date: 20180216
  Receipt Date: 20180216
  Transmission Date: 20180509
  Serious: Yes (Other)
  Sender: FDA-Public Use
  Company Number: None

PATIENT
  Age: 30 Year
  Sex: Female
  Weight: 86.64 kg

DRUGS (1)
  1. OMALIZUMAB. [Suspect]
     Active Substance: OMALIZUMAB
     Indication: ASTHMA
     Route: 058
     Dates: start: 201705, end: 201707

REACTIONS (6)
  - Angioedema [None]
  - Dermatitis exfoliative generalised [None]
  - Tongue pruritus [None]
  - Urticaria [None]
  - Pruritus [None]
  - Periorbital oedema [None]

NARRATIVE: CASE EVENT DATE: 20170721
